FAERS Safety Report 21073591 (Version 1)
Quarter: 2022Q3

REPORT INFORMATION
  Report Type: Spontaneous
  Country: GB (occurrence: GB)
  Receive Date: 20220713
  Receipt Date: 20220713
  Transmission Date: 20221027
  Serious: Yes (Death, Other)
  Sender: FDA-Public Use
  Company Number: GB-MHRA-TPP52220607C6596051YC1655456453008

PATIENT
  Age: 80 Year
  Sex: Male
  Weight: 99 kg

DRUGS (14)
  1. ONDANSETRON [Suspect]
     Active Substance: ONDANSETRON
     Indication: Ill-defined disorder
     Dosage: UNK (ONE TWICE DAILY)
     Route: 065
     Dates: start: 20220428, end: 20220503
  2. METOCLOPRAMIDE [Suspect]
     Active Substance: METOCLOPRAMIDE
     Indication: Product used for unknown indication
     Dosage: UNK (ONE 3 TIMES/DAY AS NEEDED)
     Route: 065
     Dates: start: 20220426
  3. METOCLOPRAMIDE [Suspect]
     Active Substance: METOCLOPRAMIDE
     Indication: Ill-defined disorder
     Dosage: UNK
     Route: 065
     Dates: start: 20220428
  4. PREDNISOLONE [Suspect]
     Active Substance: PREDNISOLONE
     Indication: Ill-defined disorder
     Dosage: UNK (FIVE TABLETS AS A SINGLE DOSE IN THE MORNING)
     Route: 065
     Dates: start: 20220511
  5. BISOPROLOL [Concomitant]
     Active Substance: BISOPROLOL
     Indication: Ill-defined disorder
     Dosage: UNK (ONE DAILY)
     Route: 065
     Dates: start: 20220309
  6. CALCIUM CARBONATE [Concomitant]
     Active Substance: CALCIUM CARBONATE
     Indication: Ill-defined disorder
     Dosage: UNK (TWO TWICE DAILY)
     Route: 065
     Dates: start: 20210925, end: 20220426
  7. EZETIMIBE [Concomitant]
     Active Substance: EZETIMIBE
     Indication: Ill-defined disorder
     Dosage: UNK (ONE DAILY)
     Route: 065
     Dates: start: 20210218
  8. FAMOTIDINE [Concomitant]
     Active Substance: FAMOTIDINE
     Indication: Ill-defined disorder
     Dosage: UNK (ONE AT NIGHT)
     Route: 065
     Dates: start: 20220210, end: 20220426
  9. FLUDROCORTISONE [Concomitant]
     Active Substance: FLUDROCORTISONE
     Indication: Ill-defined disorder
     Dosage: UNK (ONE EACH MORNING)
     Route: 065
     Dates: start: 20210925
  10. FOLIC ACID\IRON\MINERALS\VITAMINS [Concomitant]
     Active Substance: FOLIC ACID\IRON\MINERALS\VITAMINS
     Indication: Ill-defined disorder
     Dosage: UNK (ONE DAILY)
     Route: 065
     Dates: start: 20210925, end: 20220426
  11. LANSOPRAZOLE [Concomitant]
     Active Substance: LANSOPRAZOLE
     Indication: Ill-defined disorder
     Dosage: UNK (ONE ONCE DAILY)
     Route: 065
     Dates: start: 20210614
  12. LOPERAMIDE [Concomitant]
     Active Substance: LOPERAMIDE
     Indication: Ill-defined disorder
     Dosage: UNK (ONE UP TO FOUR TIMES A DAY AS NEEDED)
     Route: 065
     Dates: start: 20211206, end: 20220518
  13. MOMETASONE [Concomitant]
     Active Substance: MOMETASONE
     Indication: Ill-defined disorder
     Dosage: UNK (TWO SPRAYS DAILY)
     Route: 065
     Dates: start: 20190523, end: 20220426
  14. RIVAROXABAN [Concomitant]
     Active Substance: RIVAROXABAN
     Indication: Ill-defined disorder
     Dosage: UNK (ONE DAILY)
     Route: 065
     Dates: start: 20211214

REACTIONS (2)
  - Death [Fatal]
  - Skin necrosis [Fatal]

NARRATIVE: CASE EVENT DATE: 20220519
